FAERS Safety Report 9384995 (Version 1)
Quarter: 2013Q3

REPORT INFORMATION
  Report Type: Spontaneous
  Country: US (occurrence: US)
  Receive Date: 20130705
  Receipt Date: 20130705
  Transmission Date: 20140515
  Serious: No
  Sender: FDA-Public Use
  Company Number: US-GLAXOSMITHKLINE-A1021727A

PATIENT
  Sex: Female

DRUGS (1)
  1. BENLYSTA [Suspect]
     Indication: PRODUCT USED FOR UNKNOWN INDICATION
     Route: 042
     Dates: start: 20120801, end: 20130115

REACTIONS (10)
  - Memory impairment [Unknown]
  - Inflammation [Unknown]
  - Malaise [Unknown]
  - Fatigue [Unknown]
  - Musculoskeletal pain [Unknown]
  - Pain in extremity [Unknown]
  - Arthralgia [Unknown]
  - Dysarthria [Unknown]
  - Crying [Unknown]
  - Drug ineffective [Unknown]
